FAERS Safety Report 6480193-5 (Version None)
Quarter: 2009Q4

REPORT INFORMATION
  Report Type: 
  Country: None (occurrence: None)
  Receive Date: 20091208
  Receipt Date: 20090303
  Transmission Date: 20100525
  Serious: No
  Sender: FDA-Public Use
  Company Number: US-AMGEN-KDL336575

PATIENT
  Sex: Female

DRUGS (1)
  1. ENBREL [Suspect]
     Indication: RHEUMATOID ARTHRITIS
     Route: 058
     Dates: start: 19990501

REACTIONS (8)
  - FACIAL PAIN [None]
  - LOCALISED INFECTION [None]
  - PAIN [None]
  - POSTNASAL DRIP [None]
  - SINUS CONGESTION [None]
  - SINUSITIS [None]
  - STAPHYLOCOCCAL INFECTION [None]
  - SWELLING [None]
